FAERS Safety Report 8460248-6 (Version None)
Quarter: 2012Q2

REPORT INFORMATION
  Report Type: 
  Country: None (occurrence: None)
  Receive Date: 20120622
  Receipt Date: 20120615
  Transmission Date: 20120825
  Serious: Yes (Hospitalization, Other)
  Sender: FDA-Public Use
  Company Number: US-PURDUE-USA-2012-0088697

PATIENT
  Sex: Male

DRUGS (19)
  1. SUTENT [Suspect]
     Indication: RENAL CELL CARCINOMA
     Dosage: 50 MG, DAILY
     Route: 048
     Dates: start: 20120321, end: 20120418
  2. METOPROLOL TARTRATE [Concomitant]
     Indication: PRODUCT USED FOR UNKNOWN INDICATION
  3. LISINOPRIL AND HYDROCHLOROTHIAZIDE [Concomitant]
     Indication: PRODUCT USED FOR UNKNOWN INDICATION
  4. MIRALAX                            /00754501/ [Concomitant]
     Indication: PRODUCT USED FOR UNKNOWN INDICATION
  5. LASIX [Concomitant]
     Indication: PRODUCT USED FOR UNKNOWN INDICATION
  6. MEGACE [Concomitant]
     Indication: PRODUCT USED FOR UNKNOWN INDICATION
  7. MORPHINE SULFATE [Suspect]
     Indication: PAIN
  8. OMEPRAZOLE [Concomitant]
     Indication: PRODUCT USED FOR UNKNOWN INDICATION
  9. ZOFRAN [Concomitant]
     Indication: PRODUCT USED FOR UNKNOWN INDICATION
  10. COUMADIN [Concomitant]
     Indication: PRODUCT USED FOR UNKNOWN INDICATION
  11. PHENERGAN [Concomitant]
     Indication: PRODUCT USED FOR UNKNOWN INDICATION
  12. SIMVASTATIN [Concomitant]
     Indication: PRODUCT USED FOR UNKNOWN INDICATION
  13. SUCRALFATE [Concomitant]
     Indication: PRODUCT USED FOR UNKNOWN INDICATION
  14. FOLTX [Concomitant]
     Indication: PRODUCT USED FOR UNKNOWN INDICATION
  15. LORTAB [Concomitant]
     Indication: PAIN
  16. SUTENT [Suspect]
     Dosage: 50 MG, Q48H
     Route: 048
     Dates: start: 20120418
  17. OXYCONTIN [Suspect]
     Indication: PAIN
     Dosage: UNK, PM
  18. TERAZOSIN HCL [Concomitant]
     Indication: PRODUCT USED FOR UNKNOWN INDICATION
  19. KAOPECTATE                         /00139305/ [Concomitant]
     Indication: PRODUCT USED FOR UNKNOWN INDICATION

REACTIONS (23)
  - YELLOW SKIN [None]
  - NEOPLASM MALIGNANT [None]
  - CONFUSIONAL STATE [None]
  - FATIGUE [None]
  - LUNG NEOPLASM [None]
  - PYREXIA [None]
  - WEIGHT DECREASED [None]
  - PAIN [None]
  - ASTHENIA [None]
  - AZOTAEMIA [None]
  - METASTATIC PAIN [None]
  - HALLUCINATION [None]
  - NAUSEA [None]
  - DRUG INEFFECTIVE [None]
  - METASTASIS [None]
  - DYSPNOEA [None]
  - HAEMORRHAGE [None]
  - CONSTIPATION [None]
  - PAIN IN EXTREMITY [None]
  - DECREASED APPETITE [None]
  - MUSCULOSKELETAL PAIN [None]
  - HYPONATRAEMIA [None]
  - HYPERTENSION [None]
